FAERS Safety Report 9928166 (Version 1)
Quarter: 2014Q1

REPORT INFORMATION
  Report Type: Spontaneous
  Country: US (occurrence: None)
  Receive Date: 20140226
  Receipt Date: 20140226
  Transmission Date: 20141002
  Serious: Yes (Other)
  Sender: FDA-Public Use
  Company Number: None

PATIENT
  Age: 66 Year
  Sex: Male
  Weight: 90.72 kg

DRUGS (1)
  1. XARELTO [Suspect]
     Indication: THROMBOSIS
     Route: 048
     Dates: start: 20131111, end: 20140211

REACTIONS (12)
  - Vision blurred [None]
  - Dizziness [None]
  - Abasia [None]
  - Dysstasia [None]
  - Chest pain [None]
  - Middle insomnia [None]
  - Discomfort [None]
  - Pain in extremity [None]
  - Impaired driving ability [None]
  - Blood pressure fluctuation [None]
  - Pain [None]
  - Pain in extremity [None]
